FAERS Safety Report 15603767 (Version 1)
Quarter: 2018Q4

REPORT INFORMATION
  Report Type: Report from Study
  Country: US (occurrence: US)
  Receive Date: 20181109
  Receipt Date: 20181109
  Transmission Date: 20190205
  Serious: Yes (Hospitalization, Other)
  Sender: FDA-Public Use
  Company Number: US-APOPHARMA-2018AP024007

PATIENT
  Sex: Female
  Weight: 51 kg

DRUGS (5)
  1. JADENU [Concomitant]
     Active Substance: DEFERASIROX
     Indication: PRODUCT USED FOR UNKNOWN INDICATION
     Route: 065
  2. MULTIPLE VITAMINS [Concomitant]
     Active Substance: VITAMINS
     Indication: PRODUCT USED FOR UNKNOWN INDICATION
     Route: 065
  3. FERRIPROX [Suspect]
     Active Substance: DEFERIPRONE
     Indication: THALASSAEMIA
     Dosage: 29 MG/KG, TID
     Route: 048
     Dates: start: 20141114, end: 20150212
  4. FERRIPROX [Suspect]
     Active Substance: DEFERIPRONE
     Dosage: 20 MG/KG, TID
     Route: 048
     Dates: start: 201809
  5. FERRIPROX [Suspect]
     Active Substance: DEFERIPRONE
     Indication: HAEMOCHROMATOSIS
     Dosage: 29 MG/KG, TID
     Route: 048
     Dates: start: 20150406

REACTIONS (1)
  - Agranulocytosis [Unknown]
